FAERS Safety Report 8491005-2 (Version None)
Quarter: 2012Q2

REPORT INFORMATION
  Report Type: 
  Country: None (occurrence: None)
  Receive Date: 20120622
  Receipt Date: 20120608
  Transmission Date: 20120825
  Serious: Yes (Hospitalization)
  Sender: FDA-Public Use
  Company Number: 003-078

PATIENT
  Sex: Male

DRUGS (1)
  1. CROFAB [Suspect]
     Indication: SNAKE BITE
     Dosage: 18 VIALS TOTAL
     Dates: start: 20120531, end: 20120606

REACTIONS (1)
  - PLATELET COUNT DECREASED [None]
